FAERS Safety Report 9742545 (Version 2)
Quarter: 2013Q4

REPORT INFORMATION
  Report Type: Report from Study
  Country: US (occurrence: US)
  Receive Date: 20131210
  Receipt Date: 20131230
  Transmission Date: 20140711
  Serious: Yes (Hospitalization, Other)
  Sender: FDA-Public Use
  Company Number: PHEH2013US025411

PATIENT
  Sex: Female

DRUGS (7)
  1. GILENYA [Suspect]
     Indication: RELAPSING-REMITTING MULTIPLE SCLEROSIS
     Dosage: 0.5 MG, QD
     Route: 048
     Dates: start: 201103
  2. BACTRIM DS [Concomitant]
  3. BACLOFEN [Concomitant]
     Indication: MUSCLE SPASMS
  4. CETRIZINE [Concomitant]
  5. CLONAZEPAM [Concomitant]
     Indication: INSOMNIA
  6. DULERA [Concomitant]
  7. ALBUTEROL [Concomitant]

REACTIONS (6)
  - Fall [Unknown]
  - Hand fracture [Unknown]
  - Ligament sprain [Unknown]
  - Rib fracture [Unknown]
  - Foot fracture [Unknown]
  - Central nervous system lesion [Unknown]
